FAERS Safety Report 20547375 (Version 4)
Quarter: 2022Q2

REPORT INFORMATION
  Report Type: Report from Study
  Country: US (occurrence: US)
  Receive Date: 20220303
  Receipt Date: 20220623
  Transmission Date: 20220721
  Serious: Yes (Other)
  Sender: FDA-Public Use
  Company Number: US-NOVARTISPH-NVSC2022US049706

PATIENT
  Age: 38 Year
  Sex: Male
  Weight: 330 kg

DRUGS (1)
  1. COSENTYX [Suspect]
     Active Substance: SECUKINUMAB
     Indication: Product used for unknown indication
     Dosage: 150 MG (150MG 2 A MONTH TOTAL 300MG)
     Route: 065
     Dates: start: 20220120, end: 20220203

REACTIONS (8)
  - Hypersensitivity [Recovered/Resolved]
  - Injection site erythema [Unknown]
  - Lip swelling [Unknown]
  - Injection site urticaria [Unknown]
  - Swelling of eyelid [Unknown]
  - Injection site irritation [Unknown]
  - Injection site discolouration [Unknown]
  - Drug ineffective [Unknown]

NARRATIVE: CASE EVENT DATE: 20220121
